FAERS Safety Report 5008604-2 (Version None)
Quarter: 2006Q2

REPORT INFORMATION
  Report Type: 
  Country: None (occurrence: None)
  Receive Date: 20060523
  Receipt Date: 20060131
  Transmission Date: 20061013
  Serious: Yes (Hospitalization)
  Sender: FDA-Public Use
  Company Number: US-ROCHE-434399

PATIENT
  Age: 57 Year
  Sex: Female

DRUGS (4)
  1. PEGASYS [Suspect]
     Route: 065
     Dates: start: 20060130
  2. RIBASPHERE [Suspect]
     Route: 048
     Dates: start: 20060130
  3. RIBASPHERE [Suspect]
     Dosage: DECREASED DOSAGE FOLLOWING HOSPITALISATION.
     Route: 048
  4. COUMADIN [Concomitant]

REACTIONS (5)
  - COAGULOPATHY [None]
  - DIARRHOEA [None]
  - HEADACHE [None]
  - INJECTION SITE URTICARIA [None]
  - RED BLOOD CELL COUNT DECREASED [None]
